FAERS Safety Report 10046028 (Version 1)
Quarter: 2014Q1

REPORT INFORMATION
  Report Type: Spontaneous
  Country: US (occurrence: None)
  Receive Date: 20140326
  Receipt Date: 20140326
  Transmission Date: 20141002
  Serious: Yes (Hospitalization)
  Sender: FDA-Public Use
  Company Number: 2014AP002251

PATIENT
  Age: 41 Year
  Sex: Male

DRUGS (6)
  1. AZITHROMYCIN TABLETS [Suspect]
     Indication: URETHRITIS
     Dosage: UNK
  2. CEFTRIAXONE [Suspect]
     Indication: URETHRITIS
     Dosage: UNK
  3. TENOFOVIR [Suspect]
     Indication: HIV INFECTION
     Dosage: UNK
  4. DIDANOSINE [Suspect]
     Indication: HIV INFECTION
     Dosage: UNK.
  5. ATAZANAVIR [Suspect]
     Indication: HIV INFECTION
     Dosage: UNK
  6. RITONAVIR [Suspect]
     Indication: HIV INFECTION
     Dosage: UNK

REACTIONS (7)
  - Vanishing bile duct syndrome [None]
  - Drug-induced liver injury [None]
  - Pneumococcal sepsis [None]
  - Intussusception [None]
  - Renal failure [None]
  - Hodgkin^s disease [None]
  - Haemorrhagic ascites [None]
